FAERS Safety Report 10490037 (Version 1)
Quarter: 2014Q4

REPORT INFORMATION
  Report Type: Other
  Country: DE (occurrence: DE)
  Receive Date: 20141002
  Receipt Date: 20141002
  Transmission Date: 20150528
  Serious: Yes (Other)
  Sender: FDA-Public Use
  Company Number: DE-MYLANLABS-2014M1004756

PATIENT

DRUGS (6)
  1. AMITRIPTYLIN-NEURAXPHARM 100 [Suspect]
     Active Substance: AMITRIPTYLINE
     Indication: DEPRESSION
     Dosage: 100 [MG/D ], 0. - 28.4. GESTATIONAL WEEK
     Route: 048
  2. VENLAFAXINE [Suspect]
     Active Substance: VENLAFAXINE HYDROCHLORIDE
     Indication: EATING DISORDER
     Dosage: 150 [MG/D ], 0. - 33.6. GESTATIONAL WEEK
     Route: 048
     Dates: start: 20130127, end: 20130921
  3. AMITRIPTYLIN DURA 75 RET. [Suspect]
     Active Substance: AMITRIPTYLINE
     Indication: DEPRESSION
     Dosage: 75 [MG/D ], 0. - 33.6. GESTATIONAL WEEK
     Route: 048
     Dates: start: 20130127, end: 20130921
  4. VENLAFAXIN DURA 75 RET. [Suspect]
     Active Substance: VENLAFAXINE HYDROCHLORIDE
     Indication: EATING DISORDER
     Dosage: 75 [MG/D ], 0. - 33.6. GESTATIONAL WEEK
     Route: 048
     Dates: start: 20130127, end: 20130921
  5. DOXEPIN [Suspect]
     Active Substance: DOXEPIN
     Indication: ANXIETY DISORDER
     Dosage: 50 [MG/D ]/ UNTIL AUGUST 2013, 0. - 33.6. GESTATIONAL WEEK
     Route: 048
  6. ZELDOX [Suspect]
     Active Substance: ZIPRASIDONE
     Indication: SCHIZOPHRENIA
     Dosage: 60 [MG/D ], 0. - 33.6. GESTATIONAL WEEK
     Route: 048
     Dates: start: 20130127, end: 20130921

REACTIONS (1)
  - Foetal monitoring abnormal [Recovered/Resolved]
